FAERS Safety Report 7362712-X (Version None)
Quarter: 2011Q1

REPORT INFORMATION
  Report Type: 
  Country: None (occurrence: None)
  Receive Date: 20110321
  Receipt Date: 20110308
  Transmission Date: 20110831
  Serious: Yes (Hospitalization)
  Sender: FDA-Public Use
  Company Number: NL-BIOGENIDEC-2011BI008621

PATIENT
  Age: 49 Year
  Sex: Female

DRUGS (1)
  1. AVONEX [Suspect]
     Indication: MULTIPLE SCLEROSIS
     Route: 030
     Dates: start: 20080808, end: 20110228

REACTIONS (4)
  - THROMBOSIS [None]
  - PULMONARY EMBOLISM [None]
  - FALL [None]
  - LOWER LIMB FRACTURE [None]
